FAERS Safety Report 11593424 (Version 2)
Quarter: 2015Q4

REPORT INFORMATION
  Report Type: Spontaneous
  Country: US (occurrence: US)
  Receive Date: 20151005
  Receipt Date: 20151006
  Transmission Date: 20160304
  Serious: No
  Sender: FDA-Public Use
  Company Number: US-BAYER-2015-431783

PATIENT
  Age: 61 Year
  Sex: Female
  Weight: 87.75 kg

DRUGS (10)
  1. OCUVITE LUTEIN [ASCORBIC ACID,COPPER,TOCOPHEROL,XANTOFYL,ZINC] [Concomitant]
     Dosage: UNK
  2. DULCOLAX (DOCUSATE SODIUM) [Concomitant]
     Active Substance: DOCUSATE SODIUM
     Dosage: UNK
  3. LORATADINE. [Concomitant]
     Active Substance: LORATADINE
     Dosage: UNK
  4. MIRALAX [Suspect]
     Active Substance: POLYETHYLENE GLYCOL 3350
     Indication: GASTROINTESTINAL DISORDER
     Dosage: 1 DF, QD
     Route: 048
     Dates: start: 20150920, end: 20150923
  5. FLONASE [Concomitant]
     Active Substance: FLUTICASONE PROPIONATE
     Dosage: UNK
  6. MUCINEX [Concomitant]
     Active Substance: GUAIFENESIN
     Dosage: UNK
  7. FLOVENT [Concomitant]
     Active Substance: FLUTICASONE PROPIONATE
     Dosage: UNK
  8. METAMUCIL [Concomitant]
     Active Substance: PLANTAGO SEED
     Dosage: UNK
  9. TRAMADOL. [Concomitant]
     Active Substance: TRAMADOL
     Dosage: UNK
  10. IPRATROPIUM BROMIDE. [Concomitant]
     Active Substance: IPRATROPIUM BROMIDE
     Dosage: UNK

REACTIONS (11)
  - Hypoaesthesia oral [Not Recovered/Not Resolved]
  - Rash [None]
  - Pruritus [None]
  - Erythema [Not Recovered/Not Resolved]
  - Hot flush [Not Recovered/Not Resolved]
  - Renal pain [None]
  - Off label use [None]
  - Oral discomfort [None]
  - Product taste abnormal [None]
  - Rash macular [Not Recovered/Not Resolved]
  - Movement disorder [None]
